FAERS Safety Report 17245399 (Version 1)
Quarter: 2020Q1

REPORT INFORMATION
  Report Type: Spontaneous
  Country: GB (occurrence: GB)
  Receive Date: 20200108
  Receipt Date: 20200108
  Transmission Date: 20200409
  Serious: Yes (Other)
  Sender: FDA-Public Use
  Company Number: GB-TEVA-2020-GB-1163725

PATIENT
  Sex: Female

DRUGS (1)
  1. SIMVASTATIN 40MG TABLETS [Suspect]
     Active Substance: SIMVASTATIN
     Dosage: 40 MG
     Route: 048

REACTIONS (4)
  - Hallucination, visual [Recovering/Resolving]
  - Agitation [Recovering/Resolving]
  - Sleep disorder [Recovering/Resolving]
  - Psychomotor hyperactivity [Recovering/Resolving]
